FAERS Safety Report 5810148-2 (Version None)
Quarter: 2008Q3

REPORT INFORMATION
  Report Type: 
  Country: None (occurrence: None)
  Receive Date: 20080715
  Receipt Date: 20070807
  Transmission Date: 20090109
  Serious: No
  Sender: FDA-Public Use
  Company Number: A0668684A

PATIENT
  Age: 33 Year
  Sex: Female

DRUGS (3)
  1. IMITREX [Suspect]
     Indication: MIGRAINE
     Route: 048
     Dates: start: 20070731
  2. BIRTH CONTROL [Concomitant]
  3. GREEN TEA [Concomitant]

REACTIONS (2)
  - CHEST DISCOMFORT [None]
  - PAIN IN EXTREMITY [None]
